FAERS Safety Report 4505993-X (Version None)
Quarter: 2004Q4

REPORT INFORMATION
  Report Type: 
  Country: None (occurrence: None)
  Receive Date: 20041025
  Receipt Date: 20030925
  Transmission Date: 20050328
  Serious: Yes (Other)
  Sender: FDA-Public Use
  Company Number: US-JNJFOC-20030906292

PATIENT
  Sex: Female

DRUGS (1)
  1. REMICADE [Suspect]
     Indication: COLITIS ULCERATIVE
     Dosage: , 1 IN 1 DAY, INTRAVENOUS
     Route: 042
     Dates: start: 20030925

REACTIONS (8)
  - BLOOD PRESSURE DECREASED [None]
  - HEART RATE DECREASED [None]
  - HYPERHIDROSIS [None]
  - INFUSION RELATED REACTION [None]
  - MALAISE [None]
  - NAUSEA [None]
  - PALLOR [None]
  - VOMITING [None]
